FAERS Safety Report 10233218 (Version 1)
Quarter: 2014Q2

REPORT INFORMATION
  Report Type: Spontaneous
  Country: US (occurrence: US)
  Receive Date: 20140612
  Receipt Date: 20140612
  Transmission Date: 20141212
  Serious: No
  Sender: FDA-Public Use
  Company Number: US-MALLINCKRODT-T201402263

PATIENT
  Sex: Female

DRUGS (2)
  1. XARTEMIS XR [Suspect]
     Indication: PRODUCT USED FOR UNKNOWN INDICATION
     Dosage: 4 TABLETS QD
     Route: 048
  2. XARTEMIS XR [Suspect]
     Dosage: 6 TABS QD
     Route: 048

REACTIONS (4)
  - Wrong technique in drug usage process [Unknown]
  - Dysphagia [Unknown]
  - Drug effect decreased [Unknown]
  - Extra dose administered [Unknown]
